FAERS Safety Report 4845195-0 (Version None)
Quarter: 2005Q4

REPORT INFORMATION
  Report Type: 
  Country: None (occurrence: None)
  Receive Date: 20051205
  Receipt Date: 20051125
  Transmission Date: 20060501
  Serious: Yes (Other)
  Sender: FDA-Public Use
  Company Number: FR-ROCHE-426281

PATIENT
  Sex: Female
  Weight: 50 kg

DRUGS (8)
  1. COPEGUS [Suspect]
     Indication: HEPATITIS C
     Route: 048
     Dates: start: 20050101
  2. NEURONTIN [Interacting]
     Route: 065
  3. PEGASYS [Concomitant]
     Indication: HEPATITIS C
     Dates: start: 20050101
  4. DEROXAT [Concomitant]
     Dates: start: 20050527
  5. EQUANIL [Concomitant]
  6. TRIZIVIR [Concomitant]
     Indication: HIV INFECTION
  7. VIRAFERONPEG [Concomitant]
     Indication: HEPATITIS C
     Route: 058
  8. NOZINAN [Concomitant]
     Dates: end: 20050527

REACTIONS (4)
  - CONVULSION [None]
  - DRUG INTERACTION [None]
  - MENTAL DISORDER [None]
  - THERAPEUTIC PRODUCT INEFFECTIVE [None]
